FAERS Safety Report 7564811-6 (Version None)
Quarter: 2011Q2

REPORT INFORMATION
  Report Type: 
  Country: None (occurrence: None)
  Receive Date: 20110622
  Receipt Date: 20110103
  Transmission Date: 20111010
  Serious: Yes (Death)
  Sender: FDA-Public Use
  Company Number: US-MYLANLABS-2010S1022429

PATIENT
  Age: 87 Year
  Sex: Female

DRUGS (5)
  1. ALBUTEROL SULFATE [Concomitant]
  2. MORPHINE [Concomitant]
  3. CLOZAPINE [Suspect]
     Indication: SCHIZOPHRENIA, PARANOID TYPE
  4. CLOZAPINE [Suspect]
     Route: 048
  5. HALDOL [Concomitant]

REACTIONS (1)
  - CARDIAC FAILURE CONGESTIVE [None]
